FAERS Safety Report 19981514 (Version 2)
Quarter: 2021Q4

REPORT INFORMATION
  Report Type: Spontaneous
  Country: US (occurrence: US)
  Receive Date: 20211021
  Receipt Date: 20211028
  Transmission Date: 20220303
  Serious: Yes (Other)
  Sender: FDA-Public Use
  Company Number: US-TEVA-2021-US-1966696

PATIENT
  Age: 76 Year
  Sex: Male

DRUGS (7)
  1. DOXYCYCLINE [Suspect]
     Active Substance: DOXYCYCLINE
     Indication: Dermatitis herpetiformis
     Route: 065
  2. NIACIN [Suspect]
     Active Substance: NIACIN
     Indication: Dermatitis herpetiformis
     Route: 065
  3. SULFASALAZINE [Suspect]
     Active Substance: SULFASALAZINE
     Indication: Dermatitis herpetiformis
     Route: 065
  4. TETRACYCLINE [Suspect]
     Active Substance: TETRACYCLINE
     Indication: Dermatitis herpetiformis
     Route: 065
  5. DAPSONE [Suspect]
     Active Substance: DAPSONE
     Indication: Dermatitis herpetiformis
     Route: 048
  6. APREMILAST [Suspect]
     Active Substance: APREMILAST
     Indication: Dermatitis herpetiformis
     Route: 065
  7. TOFACITINIB [Concomitant]
     Active Substance: TOFACITINIB
     Indication: Dermatitis herpetiformis
     Dosage: 10 MILLIGRAM DAILY;
     Route: 048

REACTIONS (2)
  - Drug hypersensitivity [Unknown]
  - Drug ineffective [Unknown]
